FAERS Safety Report 8687436 (Version 2)
Quarter: 2013Q4

REPORT INFORMATION
  Report Type: Report from Study
  Country: US (occurrence: US)
  Receive Date: 20120727
  Receipt Date: 20131031
  Transmission Date: 20140711
  Serious: Yes (Hospitalization, Other)
  Sender: FDA-Public Use
  Company Number: US-009507513-2012SP026419

PATIENT
  Sex: Female

DRUGS (3)
  1. PEG-INTRON [Suspect]
     Indication: HEPATITIS C
     Dosage: UNK UNK, UNKNOWN
     Route: 065
     Dates: start: 20120408
  2. MK-8908 [Suspect]
     Indication: HEPATITIS C
     Dosage: UNK UNK, UNKNOWN
     Route: 065
     Dates: start: 20120407
  3. INVESTIGATIONAL DRUG (UNSPECIFIED) [Suspect]
     Indication: HEPATITIS C
     Dosage: UNK UNK, UNKNOWN
     Route: 065
     Dates: start: 20120407

REACTIONS (7)
  - Dehydration [Unknown]
  - Fatigue [Unknown]
  - Malaise [Unknown]
  - Vomiting [Unknown]
  - Blood potassium abnormal [Unknown]
  - Blood iron decreased [Unknown]
  - Anaemia [Unknown]
